FAERS Safety Report 5030756-9 (Version None)
Quarter: 2006Q2

REPORT INFORMATION
  Report Type: 
  Country: None (occurrence: None)
  Receive Date: 20060615
  Receipt Date: 20060609
  Transmission Date: 20061013
  Serious: Yes (Life-Threatening, Other)
  Sender: FDA-Public Use
  Company Number: 2006BH010727

PATIENT
  Age: 16 Year
  Sex: Male

DRUGS (6)
  1. SUPRANE (DESFULRANE) [Suspect]
     Indication: ANAESTHESIA
  2. CAPTOPRIL [Concomitant]
  3. DIGOXIN [Concomitant]
  4. ALFENTANIL [Concomitant]
  5. PROPOFOL [Concomitant]
  6. ROCURONIUM [Concomitant]

REACTIONS (7)
  - BLOOD CREATINE PHOSPHOKINASE INCREASED [None]
  - BLOOD CREATINE PHOSPHOKINASE MB INCREASED [None]
  - CARDIAC ARREST [None]
  - CARDIOVASCULAR DISORDER [None]
  - DILATATION VENTRICULAR [None]
  - VENTRICULAR FIBRILLATION [None]
  - VENTRICULAR TACHYCARDIA [None]
